FAERS Safety Report 14547750 (Version 2)
Quarter: 2018Q1

REPORT INFORMATION
  Report Type: Spontaneous
  Country: GB (occurrence: GB)
  Receive Date: 20180219
  Receipt Date: 20180306
  Transmission Date: 20180509
  Serious: Yes (Other)
  Sender: FDA-Public Use
  Company Number: GB-BAYER-2018-029258

PATIENT
  Age: 70 Year
  Sex: Female

DRUGS (1)
  1. PRAZIQUANTEL [Suspect]
     Active Substance: PRAZIQUANTEL
     Indication: INFECTION PARASITIC
     Dosage: UNK
     Dates: start: 20150907

REACTIONS (49)
  - Vessel puncture site haematoma [None]
  - Nasal inflammation [None]
  - Scab [None]
  - Skin discolouration [None]
  - Palmoplantar keratoderma [None]
  - Formication [None]
  - Sputum purulent [None]
  - Faeces discoloured [None]
  - Hypertension [None]
  - Livedo reticularis [None]
  - Pruritus [None]
  - Fungal skin infection [None]
  - Skin fissures [None]
  - Serum ferritin increased [None]
  - Increased viscosity of bronchial secretion [None]
  - Superficial vein prominence [None]
  - Skin exfoliation [None]
  - Vaginal discharge [None]
  - Hypersensitivity [None]
  - Abnormal faeces [None]
  - Faeces discoloured [None]
  - Oral discharge [None]
  - Vasodilatation [None]
  - Skin disorder [None]
  - Paraesthesia [None]
  - Therapeutic response prolonged [None]
  - Tongue coated [None]
  - Scar [None]
  - Localised infection [None]
  - Vulvovaginal pruritus [None]
  - Hepatic cyst [None]
  - Pterygium [None]
  - Pharyngeal disorder [None]
  - Skin lesion [None]
  - Cyst [None]
  - Vulva cyst [None]
  - Haemoptysis [None]
  - Abnormal faeces [None]
  - Abnormal faeces [None]
  - Vein discolouration [None]
  - Oral discharge [None]
  - Application site discharge [None]
  - Hymenolepiasis [None]
  - Procedural pain [None]
  - Musculoskeletal discomfort [None]
  - Cyst [None]
  - Rash maculo-papular [None]
  - Urticaria [None]
  - Eyelash thickening [None]

NARRATIVE: CASE EVENT DATE: 2015
